FAERS Safety Report 11179750 (Version 3)
Quarter: 2015Q2

REPORT INFORMATION
  Report Type: Spontaneous
  Country: US (occurrence: None)
  Receive Date: 20150609
  Receipt Date: 20150626
  Transmission Date: 20150821
  Serious: Yes (Other)
  Sender: FDA-Public Use
  Company Number: US-H14001-15-00854

PATIENT
  Age: 38 Year
  Sex: Female
  Weight: 99.79 kg

DRUGS (2)
  1. PHENERGAN [Suspect]
     Active Substance: PROMETHAZINE HYDROCHLORIDE
     Indication: NAUSEA
     Route: 030
     Dates: start: 20140928, end: 20140928
  2. PHENERGAN [Suspect]
     Active Substance: PROMETHAZINE HYDROCHLORIDE
     Indication: MIGRAINE
     Route: 030
     Dates: start: 20140928, end: 20140928

REACTIONS (6)
  - No therapeutic response [None]
  - Axillary nerve injury [None]
  - Injection site pain [None]
  - Injection site hypoaesthesia [None]
  - Limb injury [None]
  - Nerve injury [None]

NARRATIVE: CASE EVENT DATE: 20140928
